FAERS Safety Report 8455012-8 (Version None)
Quarter: 2012Q2

REPORT INFORMATION
  Report Type: 
  Country: None (occurrence: None)
  Receive Date: 20120621
  Receipt Date: 20120608
  Transmission Date: 20120825
  Serious: Yes (Hospitalization, Other)
  Sender: FDA-Public Use
  Company Number: US-PFIZER INC-2012034599

PATIENT
  Sex: Female
  Weight: 67 kg

DRUGS (13)
  1. DILANTIN [Suspect]
     Indication: CONVULSION
     Dosage: 100MG/2ML INJECTION THRICE A DAY
     Route: 042
     Dates: start: 20110731, end: 20110808
  2. PROTONIX [Concomitant]
     Dosage: 40 MG, UNK
     Route: 042
     Dates: start: 20110807
  3. COLACE [Concomitant]
     Dosage: 100 MG, UNK
     Route: 048
     Dates: start: 20110808
  4. DILANTIN KAPSEAL [Suspect]
     Indication: CONVULSION
     Dosage: 100 MG, 3X/DAY
     Route: 048
     Dates: start: 20110808, end: 20110816
  5. DECADRON [Concomitant]
     Dosage: 4 MG, UNK
     Route: 048
     Dates: start: 20110808
  6. LEVETIRACETAM [Concomitant]
     Dosage: 600MG/6ML SOLUTION TWICE A DAY
     Route: 048
     Dates: start: 20110816, end: 20110830
  7. ENALAPRILAT [Concomitant]
     Dosage: 1.25MG/1ML, FOUR TIMES A DAY
     Route: 042
     Dates: start: 20110730, end: 20110813
  8. LORTAB [Concomitant]
     Indication: PAIN
     Dosage: 7.5/500MG TABLET
     Dates: start: 20110808, end: 20110823
  9. GLYCERIN [Concomitant]
     Indication: CONSTIPATION
     Dosage: UNK
     Route: 054
     Dates: start: 20110814
  10. DILANTIN [Suspect]
     Dosage: 50 MG, 3X/DAY
     Route: 048
     Dates: start: 20110816, end: 20110821
  11. FAMOTIDINE [Concomitant]
     Dosage: 20MG/2ML, TWICE A DAY
     Route: 042
     Dates: start: 20110731, end: 20110814
  12. POLYETHYLENE GLYCOL [Concomitant]
     Dosage: 17GM/ ONE PACKET POWDER DAILY
     Route: 048
     Dates: start: 20110811, end: 20110825
  13. IBUPROFEN (ADVIL) [Concomitant]
     Dosage: 200 MG, UNK
     Route: 048
     Dates: start: 20110818

REACTIONS (1)
  - STEVENS-JOHNSON SYNDROME [None]
